FAERS Safety Report 9176541 (Version 2)
Quarter: 2013Q2

REPORT INFORMATION
  Report Type: Spontaneous
  Country: GB (occurrence: GB)
  Receive Date: 20130321
  Receipt Date: 20130404
  Transmission Date: 20140414
  Serious: Yes (Hospitalization)
  Sender: FDA-Public Use
  Company Number: GB-JNJFOC-20130307614

PATIENT
  Age: 32 Year
  Sex: Female

DRUGS (1)
  1. PALIPERIDONE PALMITATE [Suspect]
     Indication: BIPOLAR DISORDER
     Route: 030
     Dates: start: 20120425

REACTIONS (1)
  - Depressed mood [Recovered/Resolved]
